FAERS Safety Report 5844116-1 (Version None)
Quarter: 2008Q3

REPORT INFORMATION
  Report Type: 
  Country: None (occurrence: None)
  Receive Date: 20080813
  Receipt Date: 20080804
  Transmission Date: 20090109
  Serious: Yes (Other)
  Sender: FDA-Public Use
  Company Number: US-GENENTECH-262621

PATIENT
  Sex: Female
  Weight: 50.8 kg

DRUGS (1)
  1. HUMATROPE [Suspect]
     Indication: NEUROBLASTOMA
     Dosage: 3.3 MG, QD
     Route: 058
     Dates: start: 19981218, end: 20080131

REACTIONS (1)
  - GOITRE [None]
